FAERS Safety Report 10416675 (Version 2)
Quarter: 2014Q3

REPORT INFORMATION
  Report Type: Report from Study
  Country: AR (occurrence: AR)
  Receive Date: 20140828
  Receipt Date: 20140828
  Transmission Date: 20150326
  Serious: Yes (Hospitalization)
  Sender: FDA-Public Use
  Company Number: AR-US-EMD SERONO, INC.-7248676

PATIENT
  Sex: Female

DRUGS (1)
  1. REBIF [Suspect]
     Active Substance: INTERFERON BETA-1A
     Indication: PRODUCT USED FOR UNKNOWN INDICATION
     Dates: start: 20130521

REACTIONS (4)
  - Headache [Unknown]
  - Bone marrow disorder [Unknown]
  - Mood altered [Unknown]
  - Pain [Unknown]

NARRATIVE: CASE EVENT DATE: 2014
